FAERS Safety Report 6519950-5 (Version None)
Quarter: 2009Q4

REPORT INFORMATION
  Report Type: 
  Country: None (occurrence: None)
  Receive Date: 20091218
  Receipt Date: 20090821
  Transmission Date: 20100525
  Serious: Yes (Other)
  Sender: FDA-Public Use
  Company Number: 2009S1014930

PATIENT
  Age: 30 Year
  Sex: Male

DRUGS (1)
  1. CLONAZEPAM [Suspect]
     Dosage: ;ORAL
     Route: 048

REACTIONS (3)
  - DEPRESSED MOOD [None]
  - DRUG INEFFECTIVE [None]
  - SUICIDAL IDEATION [None]
